FAERS Safety Report 9012689 (Version 3)
Quarter: 2014Q1

REPORT INFORMATION
  Report Type: Spontaneous
  Country: US (occurrence: US)
  Receive Date: 20130114
  Receipt Date: 20140310
  Transmission Date: 20141002
  Serious: Yes (Hospitalization, Disabling)
  Sender: FDA-Public Use
  Company Number: US-009507513-1301USA005187

PATIENT
  Sex: Female
  Weight: 95.24 kg

DRUGS (1)
  1. NUVARING [Suspect]
     Indication: CONTRACEPTION
     Dosage: UNK
     Route: 067
     Dates: start: 200610, end: 20110503

REACTIONS (11)
  - Portal vein thrombosis [Not Recovered/Not Resolved]
  - Coagulopathy [Unknown]
  - Migraine [Unknown]
  - Oligomenorrhoea [Unknown]
  - Cervicitis [Unknown]
  - Syncope [Unknown]
  - Abdominal pain [Unknown]
  - Nausea [Unknown]
  - Vomiting [Unknown]
  - Dizziness [Unknown]
  - Transient ischaemic attack [Unknown]
